FAERS Safety Report 19212388 (Version 1)
Quarter: 2021Q2

REPORT INFORMATION
  Report Type: Spontaneous
  Country: US (occurrence: US)
  Receive Date: 20210504
  Receipt Date: 20210504
  Transmission Date: 20210717
  Serious: Yes (Other)
  Sender: FDA-Public Use
  Company Number: US-BAYER-2021-133979

PATIENT

DRUGS (1)
  1. VITRAKVI [Suspect]
     Active Substance: LAROTRECTINIB
     Indication: NTRK GENE FUSION OVEREXPRESSION

REACTIONS (3)
  - Therapeutic product ineffective [None]
  - Neuropathy peripheral [None]
  - Restless legs syndrome [None]
